FAERS Safety Report 12927637 (Version 1)
Quarter: 2016Q4

REPORT INFORMATION
  Report Type: Spontaneous
  Country: US (occurrence: US)
  Receive Date: 20161109
  Receipt Date: 20161109
  Transmission Date: 20170207
  Serious: Yes (Other)
  Sender: FDA-Public Use
  Company Number: US-ELI_LILLY_AND_COMPANY-US201607006308

PATIENT
  Sex: Female
  Weight: 59 kg

DRUGS (2)
  1. ALPRAZOLAM. [Concomitant]
     Active Substance: ALPRAZOLAM
     Dosage: 0.5 MG, TID
     Dates: end: 20130421
  2. CYMBALTA [Suspect]
     Active Substance: DULOXETINE HYDROCHLORIDE
     Indication: ANXIETY
     Dosage: 60 MG, QD
     Route: 048

REACTIONS (20)
  - Drug withdrawal syndrome [Unknown]
  - Fatigue [Unknown]
  - Diarrhoea [Unknown]
  - Vertigo [Unknown]
  - Confusional state [Unknown]
  - Tinnitus [Unknown]
  - Tremor [Unknown]
  - Dysphoria [Unknown]
  - Suicide attempt [Unknown]
  - Hyperhidrosis [Unknown]
  - Nausea [Unknown]
  - Agitation [Unknown]
  - Suicidal ideation [Unknown]
  - Sensory disturbance [Unknown]
  - Irritability [Unknown]
  - Headache [Unknown]
  - Vomiting [Unknown]
  - Insomnia [Unknown]
  - Dizziness [Unknown]
  - Anxiety [Unknown]
